FAERS Safety Report 20440020 (Version 1)
Quarter: 2022Q1

REPORT INFORMATION
  Report Type: Spontaneous
  Country: US (occurrence: None)
  Receive Date: 20220205
  Receipt Date: 20220205
  Transmission Date: 20220423
  Serious: Yes (Life-Threatening, Other)
  Sender: FDA-Public Use
  Company Number: None

PATIENT
  Age: 68 Year
  Sex: Male
  Weight: 67.05 kg

DRUGS (1)
  1. ACETAMINOPHEN\OXYCODONE HYDROCHLORIDE [Suspect]
     Active Substance: ACETAMINOPHEN\OXYCODONE HYDROCHLORIDE

REACTIONS (15)
  - Frustration tolerance decreased [None]
  - Anger [None]
  - Pain [None]
  - Impaired quality of life [None]
  - Drug dependence [None]
  - Loss of employment [None]
  - Homeless [None]
  - Drug withdrawal syndrome [None]
  - Insomnia [None]
  - Vomiting [None]
  - Seizure [None]
  - Road traffic accident [None]
  - Drug ineffective [None]
  - Suspected product quality issue [None]
  - Loss of personal independence in daily activities [None]

NARRATIVE: CASE EVENT DATE: 20220106
